FAERS Safety Report 9348423 (Version 1)
Quarter: 2013Q2

REPORT INFORMATION
  Report Type: Spontaneous
  Country: US (occurrence: US)
  Receive Date: 20130614
  Receipt Date: 20130614
  Transmission Date: 20140414
  Serious: No
  Sender: FDA-Public Use
  Company Number: US-BAUSCH-BL-2012-000640

PATIENT
  Age: 9 Year
  Sex: Male
  Weight: 29.51 kg

DRUGS (1)
  1. CYCLOPENTOLATE HYDROCHLORIDE [Suspect]
     Indication: MYDRIASIS
     Route: 047
     Dates: start: 20120607, end: 20120607

REACTIONS (4)
  - Visual impairment [Recovered/Resolved]
  - Tic [Not Recovered/Not Resolved]
  - Ear pain [Not Recovered/Not Resolved]
  - Abnormal behaviour [Not Recovered/Not Resolved]
